FAERS Safety Report 13591696 (Version 1)
Quarter: 2017Q2

REPORT INFORMATION
  Report Type: Spontaneous
  Country: US (occurrence: US)
  Receive Date: 20170530
  Receipt Date: 20170530
  Transmission Date: 20170830
  Serious: Yes (Hospitalization, Disabling, Other)
  Sender: FDA-Public Use
  Company Number: US-ARALEZ PHARMACEUTICALS R+D INC.-ARA-TP-US-2017-72

PATIENT
  Sex: Male
  Weight: 85.81 kg

DRUGS (10)
  1. CRESTOR [Suspect]
     Active Substance: ROSUVASTATIN CALCIUM
     Indication: HYPERCHOLESTEROLAEMIA
     Route: 048
     Dates: start: 2003
  2. CRESTOR [Suspect]
     Active Substance: ROSUVASTATIN CALCIUM
     Route: 048
  3. SYNTHROID [Concomitant]
     Active Substance: LEVOTHYROXINE SODIUM
     Indication: THYROID DISORDER
     Route: 048
  4. ISOSORBIDE. [Concomitant]
     Active Substance: ISOSORBIDE
     Indication: CARDIAC DISORDER
     Route: 048
     Dates: start: 2014
  5. RANEXA [Concomitant]
     Active Substance: RANOLAZINE
     Indication: DYSPNOEA
     Route: 048
     Dates: start: 2016
  6. MAGNESIUM [Concomitant]
     Active Substance: MAGNESIUM
     Indication: HYPOMAGNESAEMIA
     Route: 048
  7. TOPROL XL [Suspect]
     Active Substance: METOPROLOL SUCCINATE
     Indication: HYPERTENSION
     Route: 048
     Dates: start: 2002
  8. NOVOLOG [Concomitant]
     Active Substance: INSULIN ASPART
     Indication: DIABETES MELLITUS
  9. LEVEMIR [Concomitant]
     Active Substance: INSULIN DETEMIR
     Indication: DIABETES MELLITUS
  10. PLAVIX [Concomitant]
     Active Substance: CLOPIDOGREL BISULFATE
     Indication: ANTICOAGULANT THERAPY
     Route: 048
     Dates: start: 2000

REACTIONS (16)
  - Hypotension [Recovered/Resolved]
  - Cerebrovascular accident [None]
  - Renal impairment [None]
  - Memory impairment [None]
  - Stent placement [None]
  - Seizure [None]
  - Amnesia [None]
  - Stent placement [None]
  - Vertigo [None]
  - Cerebrovascular accident [None]
  - Dizziness [Recovered/Resolved]
  - Dyspnoea [None]
  - Confusional state [None]
  - Cerebrovascular accident [None]
  - Pancreatitis [None]
  - Loss of personal independence in daily activities [None]

NARRATIVE: CASE EVENT DATE: 2006
